FAERS Safety Report 5459297-1 (Version None)
Quarter: 2007Q3

REPORT INFORMATION
  Report Type: 
  Country: None (occurrence: None)
  Receive Date: 20070919
  Receipt Date: 20070910
  Transmission Date: 20080115
  Serious: Yes (Disabling, Other)
  Sender: FDA-Public Use
  Company Number: US-ASTRAZENECA-2007AC01743

PATIENT
  Age: 33 Year
  Sex: Male

DRUGS (2)
  1. BUPIVACAINE [Suspect]
     Dates: start: 20050401, end: 20050401
  2. BUPIVACAINE [Suspect]
     Dates: start: 20050401, end: 20050401

REACTIONS (1)
  - CERVICAL MYELOPATHY [None]
